FAERS Safety Report 16895545 (Version 1)
Quarter: 2019Q4

REPORT INFORMATION
  Report Type: Spontaneous
  Country: JP (occurrence: JP)
  Receive Date: 20191008
  Receipt Date: 20191008
  Transmission Date: 20200122
  Serious: Yes (Death, Hospitalization, Other)
  Sender: FDA-Public Use
  Company Number: JP-PFIZER INC-2019426836

PATIENT
  Age: 6 Decade
  Sex: Female

DRUGS (5)
  1. 5-FLUOROURACIL [FLUOROURACIL] [Concomitant]
     Active Substance: FLUOROURACIL
     Indication: BREAST CANCER
     Dosage: UNK UNK, CYCLIC (4 CYCLES)
  2. CYCLOPHOSPHAMIDE. [Concomitant]
     Active Substance: CYCLOPHOSPHAMIDE
     Indication: BREAST CANCER
     Dosage: UNK UNK, CYCLIC (4 CYCLES)
  3. DOCETAXEL. [Concomitant]
     Active Substance: DOCETAXEL
     Indication: BREAST CANCER
     Dosage: UNK UNK, CYCLIC (4 CYCLES)
  4. TRASTUZUMAB. [Suspect]
     Active Substance: TRASTUZUMAB
     Indication: BREAST CANCER
     Dosage: 3200 MG, CYCLIC (4 CYCLES)
  5. EPIRUBICIN [Concomitant]
     Active Substance: EPIRUBICIN
     Indication: BREAST CANCER
     Dosage: 900MG, CYCLIC (4 CYCLES)

REACTIONS (1)
  - Cardiac failure [Fatal]
